FAERS Safety Report 7706683-2 (Version None)
Quarter: 2011Q3

REPORT INFORMATION
  Report Type: 
  Country: None (occurrence: None)
  Receive Date: 20110824
  Receipt Date: 20110812
  Transmission Date: 20111222
  Serious: Yes (Other)
  Sender: FDA-Public Use
  Company Number: IE-JNJFOC-20110705898

PATIENT
  Sex: Female

DRUGS (1)
  1. NEOSPORIN [Suspect]
     Indication: WOUND TREATMENT
     Route: 061

REACTIONS (4)
  - BLISTER [None]
  - DISCOMFORT [None]
  - APPLICATION SITE SWELLING [None]
  - APPLICATION SITE RASH [None]
